FAERS Safety Report 13544377 (Version 2)
Quarter: 2017Q3

REPORT INFORMATION
  Report Type: Spontaneous
  Country: JP (occurrence: JP)
  Receive Date: 20170515
  Receipt Date: 20170719
  Transmission Date: 20171127
  Serious: Yes (Hospitalization, Other)
  Sender: FDA-Public Use
  Company Number: JP-BAXALTA-2017BXJ001106

PATIENT
  Age: 1 Year
  Sex: Male
  Weight: 12.5 kg

DRUGS (12)
  1. ADVATE [Suspect]
     Active Substance: ANTIHEMOPHILIC FACTOR, HUMAN RECOMBINANT
     Dosage: 250 IU, ONCE
     Route: 042
     Dates: start: 20160805, end: 20160805
  2. ADVATE [Suspect]
     Active Substance: ANTIHEMOPHILIC FACTOR, HUMAN RECOMBINANT
     Indication: FACTOR VIII DEFICIENCY
     Dosage: 250 IU, ONCE
     Route: 042
     Dates: start: 20160113, end: 20160113
  3. ADVATE [Suspect]
     Active Substance: ANTIHEMOPHILIC FACTOR, HUMAN RECOMBINANT
     Dosage: 250 IU, ONCE
     Route: 042
     Dates: start: 20160804, end: 20160804
  4. ADVATE [Suspect]
     Active Substance: ANTIHEMOPHILIC FACTOR, HUMAN RECOMBINANT
     Indication: IMMUNE TOLERANCE INDUCTION
     Dosage: 500 IU, 3X A WEEK, PROPHYLAXIS
     Route: 042
     Dates: start: 20161130
  5. BAXJECT II [Suspect]
     Active Substance: DEVICE
     Indication: FACTOR VIII DEFICIENCY
     Dosage: 500 IU, 3X A WEEK, PROPHYLAXIS
  6. ADVATE [Suspect]
     Active Substance: ANTIHEMOPHILIC FACTOR, HUMAN RECOMBINANT
     Dosage: 250 IU, ONCE
     Route: 042
     Dates: start: 20160803, end: 20160803
  7. ADVATE [Suspect]
     Active Substance: ANTIHEMOPHILIC FACTOR, HUMAN RECOMBINANT
     Dosage: 250 IU, ONCE
     Route: 042
     Dates: start: 20160802, end: 20160802
  8. ADVATE [Suspect]
     Active Substance: ANTIHEMOPHILIC FACTOR, HUMAN RECOMBINANT
     Dosage: 250 IU, ONCE
     Route: 042
     Dates: start: 20160915, end: 20160915
  9. ADVATE [Suspect]
     Active Substance: ANTIHEMOPHILIC FACTOR, HUMAN RECOMBINANT
     Dosage: 250 IU, ONCE
     Route: 042
     Dates: start: 20160916, end: 20160916
  10. ADVATE [Suspect]
     Active Substance: ANTIHEMOPHILIC FACTOR, HUMAN RECOMBINANT
     Dosage: 250 IU, ONCE
     Route: 042
     Dates: start: 20161114, end: 20161114
  11. ADVATE [Suspect]
     Active Substance: ANTIHEMOPHILIC FACTOR, HUMAN RECOMBINANT
     Dosage: 250 IU, ONCE
     Route: 042
     Dates: start: 20160914, end: 20160914
  12. ADVATE [Suspect]
     Active Substance: ANTIHEMOPHILIC FACTOR, HUMAN RECOMBINANT
     Dosage: 250 IU, ONCE
     Route: 042
     Dates: start: 20161001, end: 20161001

REACTIONS (2)
  - Haemarthrosis [Unknown]
  - Factor VIII inhibition [Unknown]

NARRATIVE: CASE EVENT DATE: 20161114
